FAERS Safety Report 8550233-8 (Version None)
Quarter: 2012Q3

REPORT INFORMATION
  Report Type: 
  Country: None (occurrence: None)
  Receive Date: 20120730
  Receipt Date: 20120720
  Transmission Date: 20120928
  Serious: Yes (Other)
  Sender: FDA-Public Use
  Company Number: US-ASTRAZENECA-2012SE51234

PATIENT
  Age: 89 Year
  Sex: Female

DRUGS (3)
  1. NEXIUM [Suspect]
     Indication: GASTROOESOPHAGEAL REFLUX DISEASE
     Dosage: EVERY DAY
     Route: 048
  2. NEXIUM [Suspect]
     Dosage: TWO TIMES A DAY
     Route: 048
  3. PRAVASTATIN SODIUM [Concomitant]

REACTIONS (4)
  - DYSPEPSIA [None]
  - OFF LABEL USE [None]
  - SPINAL FRACTURE [None]
  - INTENTIONAL DRUG MISUSE [None]
